FAERS Safety Report 16938315 (Version 2)
Quarter: 2019Q4

REPORT INFORMATION
  Report Type: Report from Study
  Country: CA (occurrence: CA)
  Receive Date: 20191019
  Receipt Date: 20191029
  Transmission Date: 20200122
  Serious: Yes (Other)
  Sender: FDA-Public Use
  Company Number: PHHY2019CA214934

PATIENT
  Sex: Female

DRUGS (9)
  1. SIMPONI [Concomitant]
     Active Substance: GOLIMUMAB
     Indication: PRODUCT USED FOR UNKNOWN INDICATION
     Route: 065
  2. DICLOPHENAC [Concomitant]
     Active Substance: DICLOFENAC SODIUM
     Indication: PRODUCT USED FOR UNKNOWN INDICATION
     Dosage: UNK
     Route: 065
     Dates: start: 200905, end: 201002
  3. COSENTYX [Suspect]
     Active Substance: SECUKINUMAB
     Indication: ANKYLOSING SPONDYLITIS
     Dosage: UNK
     Route: 065
     Dates: start: 20190619
  4. DICLOFENAC [Suspect]
     Active Substance: DICLOFENAC
     Indication: PRODUCT USED FOR UNKNOWN INDICATION
     Dosage: UNK
     Route: 065
     Dates: start: 200905, end: 201002
  5. DICLOFENAC [Suspect]
     Active Substance: DICLOFENAC
     Dosage: UNK
     Route: 065
     Dates: start: 2012, end: 2012
  6. SULFASALAZINE. [Concomitant]
     Active Substance: SULFASALAZINE
     Indication: PRODUCT USED FOR UNKNOWN INDICATION
     Route: 065
  7. CELEBREX [Concomitant]
     Active Substance: CELECOXIB
     Indication: PRODUCT USED FOR UNKNOWN INDICATION
     Dosage: UNK
     Route: 065
     Dates: start: 2012, end: 2013
  8. INFLECTRA [Concomitant]
     Active Substance: INFLIXIMAB-DYYB
     Indication: PRODUCT USED FOR UNKNOWN INDICATION
     Route: 065
  9. COSENTYX [Suspect]
     Active Substance: SECUKINUMAB
     Dosage: 150 MG, QMO (SENSOREADY PEN)
     Route: 058
     Dates: start: 2019

REACTIONS (23)
  - Multi-organ disorder [Unknown]
  - Rosacea [Unknown]
  - Dyspnoea [Recovering/Resolving]
  - Spinal pain [Unknown]
  - Fatigue [Not Recovered/Not Resolved]
  - Painful respiration [Unknown]
  - Musculoskeletal stiffness [Not Recovered/Not Resolved]
  - Alanine aminotransferase increased [Unknown]
  - Non-cardiac chest pain [Unknown]
  - Musculoskeletal pain [Not Recovered/Not Resolved]
  - Drug ineffective [Not Recovered/Not Resolved]
  - Lung disorder [Unknown]
  - Pain in extremity [Not Recovered/Not Resolved]
  - Dyspnoea exertional [Unknown]
  - Dyspnoea at rest [Not Recovered/Not Resolved]
  - Malaise [Unknown]
  - Bone disorder [Unknown]
  - Oropharyngeal discomfort [Unknown]
  - Muscle disorder [Unknown]
  - Arthralgia [Not Recovered/Not Resolved]
  - Eye disorder [Recovering/Resolving]
  - Therapeutic response decreased [Unknown]
  - Cough [Unknown]

NARRATIVE: CASE EVENT DATE: 2019
